FAERS Safety Report 7482142-X (Version None)
Quarter: 2011Q2

REPORT INFORMATION
  Report Type: 
  Country: None (occurrence: None)
  Receive Date: 20110516
  Receipt Date: 20110506
  Transmission Date: 20111010
  Serious: Yes (Death, Hospitalization)
  Sender: FDA-Public Use
  Company Number: IT-PFIZER INC-2011095647

PATIENT
  Age: 37 Year
  Sex: Male

DRUGS (2)
  1. SUTENT [Suspect]
     Dosage: 25 MG, 1X/DAY
     Route: 065
     Dates: start: 20110301, end: 20110401
  2. SUTENT [Suspect]
     Indication: INSULINOMA
     Dosage: 37.5 MG, 1X/DAY
     Dates: end: 20110301

REACTIONS (2)
  - DISEASE PROGRESSION [None]
  - INSULINOMA [None]
